FAERS Safety Report 19128698 (Version 1)
Quarter: 2021Q2

REPORT INFORMATION
  Report Type: Spontaneous
  Country: US (occurrence: US)
  Receive Date: 20210413
  Receipt Date: 20210413
  Transmission Date: 20210717
  Serious: No
  Sender: FDA-Public Use
  Company Number: US-ALLERGAN-2026365US

PATIENT
  Sex: Female

DRUGS (1)
  1. LATISSE [Suspect]
     Active Substance: BIMATOPROST
     Indication: GROWTH OF EYELASHES
     Dosage: 2 GTT, QPM

REACTIONS (6)
  - Eyelid rash [Unknown]
  - Wrong technique in product usage process [Unknown]
  - Adverse event [Unknown]
  - Suspected product contamination [Unknown]
  - Eyelids pruritus [Recovered/Resolved]
  - Madarosis [Unknown]
